FAERS Safety Report 5009676-1 (Version None)
Quarter: 2006Q2

REPORT INFORMATION
  Report Type: 
  Country: None (occurrence: None)
  Receive Date: 20060524
  Receipt Date: 20060512
  Transmission Date: 20061013
  Serious: Yes (Hospitalization, Other)
  Sender: FDA-Public Use
  Company Number: US-BRISTOL-MYERS SQUIBB COMPANY-13376157

PATIENT
  Age: 32 Year
  Sex: Female
  Weight: 68 kg

DRUGS (3)
  1. REYATAZ [Suspect]
     Indication: HIV INFECTION
     Dosage: STOPPED FOR 1 MONTH RESTARTED IN MID-FEB-2006
  2. NORVIR [Concomitant]
     Dosage: STOPPED FOR 1 MONTH AND RESTARTED.
  3. TRUVADA [Concomitant]
     Dosage: DOSAGE FORM=1 TABLET 200-300 MG DAILY. STOPPED FOR 1 MONTH AND RESTARTED.

REACTIONS (4)
  - CHEST PAIN [None]
  - HYSTERECTOMY [None]
  - INFECTION [None]
  - MYOCARDIAL INFARCTION [None]
